FAERS Safety Report 5217538-X (Version None)
Quarter: 2007Q1

REPORT INFORMATION
  Report Type: 
  Country: None (occurrence: None)
  Receive Date: 20061130
  Receipt Date: 20060414
  Transmission Date: 20070707
  Serious: Yes (Other)
  Sender: FDA-Public Use
  Company Number: US200602004115

PATIENT
  Sex: Male
  Weight: 100.7 kg

DRUGS (1)
  1. ZYPREXA [Suspect]
     Dates: start: 19980101

REACTIONS (3)
  - DIABETES MELLITUS [None]
  - GLUCOSE TOLERANCE IMPAIRED [None]
  - HYPERGLYCAEMIA [None]
